FAERS Safety Report 8609187 (Version 3)
Quarter: 2014Q1

REPORT INFORMATION
  Report Type: Spontaneous
  Country: US (occurrence: US)
  Receive Date: 20120611
  Receipt Date: 20140313
  Transmission Date: 20141002
  Serious: No
  Sender: FDA-Public Use
  Company Number: US-ASTRAZENECA-2012SE21424

PATIENT
  Age: 57 Year
  Sex: Female
  Weight: 90.7 kg

DRUGS (13)
  1. RHINOCORT AQUA [Suspect]
     Route: 045
  2. NEXIUM [Suspect]
     Indication: GASTROOESOPHAGEAL REFLUX DISEASE
     Route: 048
     Dates: start: 2001, end: 20130815
  3. NEXIUM [Suspect]
     Indication: GASTROOESOPHAGEAL REFLUX DISEASE
     Route: 048
     Dates: start: 2001, end: 20131222
  4. NEXIUM [Suspect]
     Indication: GASTROOESOPHAGEAL REFLUX DISEASE
     Route: 048
     Dates: start: 2001
  5. GABOPENTIN [Concomitant]
     Indication: NERVOUS SYSTEM DISORDER
  6. AZERT [Concomitant]
     Indication: HEADACHE
  7. TOPROMAX [Concomitant]
     Indication: HEADACHE
  8. XANAX [Concomitant]
     Indication: NERVOUS SYSTEM DISORDER
  9. PROZAC [Concomitant]
     Indication: NERVOUS SYSTEM DISORDER
  10. SOMA [Concomitant]
     Indication: PAIN
  11. HYDROCODONE [Concomitant]
     Indication: PAIN
  12. LIDODERM PATCHES [Concomitant]
     Indication: FIBROMYALGIA
  13. WATER PILL [Concomitant]
     Indication: BLOOD PRESSURE ABNORMAL

REACTIONS (23)
  - Anxiety [Unknown]
  - Flatulence [Unknown]
  - Constipation [Unknown]
  - Gastrooesophageal reflux disease [Unknown]
  - Vomiting [Unknown]
  - Fibromyalgia [Unknown]
  - Arthritis [Unknown]
  - Pain [Unknown]
  - Gastric disorder [Unknown]
  - Sleep disorder due to a general medical condition [Unknown]
  - Eating disorder [Unknown]
  - Gastrooesophageal reflux disease [Unknown]
  - Tooth disorder [Unknown]
  - Dry mouth [Unknown]
  - Memory impairment [Unknown]
  - Osteoarthritis [Unknown]
  - Headache [Unknown]
  - Rheumatoid arthritis [Unknown]
  - Weight increased [Unknown]
  - Teeth brittle [Unknown]
  - Migraine [Unknown]
  - Depression [Unknown]
  - Intentional drug misuse [Unknown]
